FAERS Safety Report 12470574 (Version 1)
Quarter: 2016Q2

REPORT INFORMATION
  Report Type: Spontaneous
  Country: FR (occurrence: FR)
  Receive Date: 20160616
  Receipt Date: 20160616
  Transmission Date: 20160815
  Serious: Yes (Life-Threatening, Disabling, Other)
  Sender: FDA-Public Use
  Company Number: FR-BAUSCH-BL-2016-013925

PATIENT
  Age: 61 Year

DRUGS (33)
  1. AMOXICILLIN. [Suspect]
     Active Substance: AMOXICILLIN
     Indication: ENTEROCOCCAL INFECTION
  2. CEFOTAXIME [Concomitant]
     Active Substance: CEFOTAXIME SODIUM
     Indication: STAPHYLOCOCCAL INFECTION
  3. AMOXICILLIN. [Suspect]
     Active Substance: AMOXICILLIN
     Indication: ESCHERICHIA INFECTION
     Route: 042
     Dates: start: 201411
  4. AMOXICILLIN. [Suspect]
     Active Substance: AMOXICILLIN
     Indication: BACTEROIDES INFECTION
     Route: 048
     Dates: start: 2014
  5. SULFAMETHOXAZOLE/TRIMETHOPRIM [Suspect]
     Active Substance: SULFAMETHOXAZOLE\TRIMETHOPRIM
     Indication: ESCHERICHIA INFECTION
     Route: 065
     Dates: start: 201411
  6. AMOXICILLIN. [Concomitant]
     Active Substance: AMOXICILLIN
     Indication: ENTEROCOCCAL INFECTION
  7. LEVOFLOXACIN. [Concomitant]
     Active Substance: LEVOFLOXACIN
     Indication: ENTEROBACTER INFECTION
  8. CLINDAMYCIN [Concomitant]
     Active Substance: CLINDAMYCIN\CLINDAMYCIN PHOSPHATE
     Indication: STAPHYLOCOCCAL INFECTION
  9. CLAVULANIC ACID [Concomitant]
     Active Substance: CLAVULANIC ACID
     Indication: ENTEROCOCCAL INFECTION
     Dates: start: 2013
  10. CLAVULANIC ACID [Concomitant]
     Active Substance: CLAVULANIC ACID
     Indication: STREPTOCOCCAL INFECTION
  11. SULFAMETHOXAZOLE/TRIMETHOPRIM [Suspect]
     Active Substance: SULFAMETHOXAZOLE\TRIMETHOPRIM
     Indication: ENTEROCOCCAL INFECTION
  12. AMOXICILLIN. [Concomitant]
     Active Substance: AMOXICILLIN
     Indication: STREPTOCOCCAL INFECTION
     Dates: start: 2013
  13. AMOXICILLIN. [Concomitant]
     Active Substance: AMOXICILLIN
     Indication: PROTEUS INFECTION
  14. METRONIDAZOLE. [Suspect]
     Active Substance: METRONIDAZOLE
     Indication: ESCHERICHIA INFECTION
     Route: 065
     Dates: start: 201411
  15. SULFAMETHOXAZOLE/TRIMETHOPRIM [Suspect]
     Active Substance: SULFAMETHOXAZOLE\TRIMETHOPRIM
     Indication: PROTEUS INFECTION
  16. CEFOTAXIME [Concomitant]
     Active Substance: CEFOTAXIME SODIUM
     Indication: PROTEUS INFECTION
     Dates: start: 2013
  17. AMOXICILLIN. [Concomitant]
     Active Substance: AMOXICILLIN
     Indication: ENTEROBACTER INFECTION
  18. CLAVULANIC ACID [Concomitant]
     Active Substance: CLAVULANIC ACID
     Indication: ENTEROBACTER INFECTION
  19. METRONIDAZOLE. [Suspect]
     Active Substance: METRONIDAZOLE
     Indication: PROTEUS INFECTION
  20. VANCOMYCIN [Suspect]
     Active Substance: VANCOMYCIN
     Indication: ANTIBIOTIC THERAPY
     Route: 065
     Dates: start: 201411
  21. AMOXICILLIN. [Concomitant]
     Active Substance: AMOXICILLIN
     Indication: BACTEROIDES INFECTION
  22. LEVOFLOXACIN. [Concomitant]
     Active Substance: LEVOFLOXACIN
     Indication: ENTEROCOCCAL INFECTION
  23. LEVOFLOXACIN. [Concomitant]
     Active Substance: LEVOFLOXACIN
     Indication: BACTEROIDES INFECTION
  24. CLAVULANIC ACID [Concomitant]
     Active Substance: CLAVULANIC ACID
     Indication: PROTEUS INFECTION
  25. METRONIDAZOLE. [Suspect]
     Active Substance: METRONIDAZOLE
     Indication: ENTEROCOCCAL INFECTION
     Route: 048
     Dates: start: 2014
  26. CLAVULANIC ACID [Concomitant]
     Active Substance: CLAVULANIC ACID
     Indication: BACTEROIDES INFECTION
  27. METRONIDAZOLE. [Suspect]
     Active Substance: METRONIDAZOLE
     Indication: BACTEROIDES INFECTION
  28. AMOXICILLIN. [Suspect]
     Active Substance: AMOXICILLIN
     Indication: PROTEUS INFECTION
  29. AMOXICILLIN. [Concomitant]
     Active Substance: AMOXICILLIN
     Indication: STAPHYLOCOCCAL INFECTION
  30. CLINDAMYCIN [Concomitant]
     Active Substance: CLINDAMYCIN\CLINDAMYCIN PHOSPHATE
     Indication: PROTEUS INFECTION
  31. ORBENINE [Concomitant]
     Active Substance: CLOXACILLIN SODIUM
     Indication: PROTEUS INFECTION
  32. SULFAMETHOXAZOLE/TRIMETHOPRIM [Suspect]
     Active Substance: SULFAMETHOXAZOLE\TRIMETHOPRIM
     Indication: BACTEROIDES INFECTION
     Route: 048
     Dates: start: 2014
  33. LEVOFLOXACIN. [Concomitant]
     Active Substance: LEVOFLOXACIN
     Indication: PROTEUS INFECTION
     Dates: start: 2013

REACTIONS (2)
  - Drug ineffective [Unknown]
  - Treatment failure [Unknown]
